FAERS Safety Report 16680856 (Version 3)
Quarter: 2020Q1

REPORT INFORMATION
  Report Type: Spontaneous
  Country: CA (occurrence: CA)
  Receive Date: 20190808
  Receipt Date: 20200212
  Transmission Date: 20200409
  Serious: Yes (Death, Other)
  Sender: FDA-Public Use
  Company Number: CA-OCTA-NGAM12419CA

PATIENT
  Age: 13 Year
  Sex: Male
  Weight: 32 kg

DRUGS (4)
  1. OXYGEN. [Concomitant]
     Active Substance: OXYGEN
     Indication: PRODUCT USED FOR UNKNOWN INDICATION
  2. PANZYGA [Suspect]
     Active Substance: HUMAN IMMUNOGLOBULIN G
     Indication: MYOCARDITIS
     Route: 042
     Dates: start: 20190320, end: 20190320
  3. ANCEF [Concomitant]
     Active Substance: CEFAZOLIN SODIUM
     Indication: PRODUCT USED FOR UNKNOWN INDICATION
  4. CEFTRIAXONE. [Concomitant]
     Active Substance: CEFTRIAXONE
     Indication: PRODUCT USED FOR UNKNOWN INDICATION

REACTIONS (13)
  - Hypertension [Fatal]
  - Dyspnoea [Fatal]
  - Tachycardia [Fatal]
  - Livedo reticularis [Fatal]
  - Multiple organ dysfunction syndrome [Fatal]
  - Chills [Fatal]
  - Tachypnoea [Fatal]
  - Troponin increased [Fatal]
  - Pyrexia [Fatal]
  - Febrile nonhaemolytic transfusion reaction [Fatal]
  - Acute respiratory distress syndrome [Fatal]
  - Encephalopathy [Fatal]
  - Metabolic disorder [Fatal]

NARRATIVE: CASE EVENT DATE: 20190320
